FAERS Safety Report 10168331 (Version 1)
Quarter: 2014Q2

REPORT INFORMATION
  Report Type: Report from Study
  Country: MX (occurrence: MX)
  Receive Date: 20140512
  Receipt Date: 20140512
  Transmission Date: 20141212
  Serious: Yes (Other)
  Sender: FDA-Public Use
  Company Number: PHHY2014MX057255

PATIENT
  Sex: Male

DRUGS (1)
  1. CO-DIOVAN [Suspect]
     Dosage: 80/12.5 MG, UKN
     Route: 048

REACTIONS (2)
  - Renal cancer [Not Recovered/Not Resolved]
  - Malaise [Not Recovered/Not Resolved]
